FAERS Safety Report 17520618 (Version 1)
Quarter: 2020Q1

REPORT INFORMATION
  Report Type: Spontaneous
  Country: US (occurrence: US)
  Receive Date: 20200310
  Receipt Date: 20200310
  Transmission Date: 20200409
  Serious: No
  Sender: FDA-Public Use
  Company Number: US-PFIZER INC-2020101034

PATIENT

DRUGS (1)
  1. MORPHINE SULFATE. [Suspect]
     Active Substance: MORPHINE SULFATE
     Indication: PAIN
     Dosage: 330 MG, DAILY (THREE 60MG ER AND FIVE 30MG IR)

REACTIONS (22)
  - Drug ineffective [Unknown]
  - Constipation [Unknown]
  - Decreased appetite [Unknown]
  - Withdrawal syndrome [Unknown]
  - Cough [Unknown]
  - Nausea [Unknown]
  - Insomnia [Unknown]
  - Fatigue [Unknown]
  - Vomiting [Unknown]
  - Social problem [Unknown]
  - Blood glucose increased [Unknown]
  - Dysphonia [Unknown]
  - Micturition urgency [Unknown]
  - Loss of employment [Unknown]
  - Trichorrhexis [Unknown]
  - Weight decreased [Unknown]
  - Blood potassium increased [Unknown]
  - Pollakiuria [Unknown]
  - Dysuria [Unknown]
  - Liver disorder [Unknown]
  - Diarrhoea [Unknown]
  - Anxiety [Unknown]
